FAERS Safety Report 8808119 (Version 3)
Quarter: 2015Q2

REPORT INFORMATION
  Report Type: Report from Study
  Country: US (occurrence: US)
  Receive Date: 20120925
  Receipt Date: 20150630
  Transmission Date: 20150821
  Serious: Yes (Death)
  Sender: FDA-Public Use
  Company Number: US-ROCHE-1129283

PATIENT
  Sex: Male
  Weight: 103.97 kg

DRUGS (28)
  1. AVASTIN [Suspect]
     Active Substance: BEVACIZUMAB
     Indication: MALIGNANT RESPIRATORY TRACT NEOPLASM
     Route: 042
     Dates: start: 20050815
  2. BENADRYL [Concomitant]
     Active Substance: DIPHENHYDRAMINE HYDROCHLORIDE
     Route: 042
     Dates: start: 20050825
  3. DEPO-MEDROL [Concomitant]
     Active Substance: METHYLPREDNISOLONE ACETATE
  4. AVASTIN [Suspect]
     Active Substance: BEVACIZUMAB
     Route: 042
     Dates: start: 20050908
  5. GEMZAR [Concomitant]
     Active Substance: GEMCITABINE HYDROCHLORIDE
     Route: 042
  6. KYTRIL [Concomitant]
     Active Substance: GRANISETRON HYDROCHLORIDE
     Route: 042
     Dates: start: 20050815
  7. DECADRON [Concomitant]
     Active Substance: DEXAMETHASONE
     Route: 042
     Dates: start: 20050908
  8. BENADRYL [Concomitant]
     Active Substance: DIPHENHYDRAMINE HYDROCHLORIDE
     Route: 042
     Dates: start: 20050815
  9. KEFLEX [Concomitant]
     Active Substance: CEPHALEXIN
     Route: 065
  10. HYDROCORTISONE. [Concomitant]
     Active Substance: HYDROCORTISONE
  11. KYTRIL [Concomitant]
     Active Substance: GRANISETRON HYDROCHLORIDE
     Route: 042
     Dates: start: 20050908
  12. DECADRON [Concomitant]
     Active Substance: DEXAMETHASONE
     Route: 042
     Dates: start: 20050922
  13. TAGAMET [Concomitant]
     Active Substance: CIMETIDINE
     Route: 042
     Dates: start: 20050922
  14. PREDNISONE. [Concomitant]
     Active Substance: PREDNISONE
     Route: 065
  15. SOLU-MEDROL [Concomitant]
     Active Substance: METHYLPREDNISOLONE SODIUM SUCCINATE
  16. AVASTIN [Suspect]
     Active Substance: BEVACIZUMAB
     Route: 042
     Dates: start: 20050825
  17. TAGAMET [Concomitant]
     Active Substance: CIMETIDINE
     Route: 042
     Dates: start: 20050815
  18. BENADRYL [Concomitant]
     Active Substance: DIPHENHYDRAMINE HYDROCHLORIDE
     Route: 042
     Dates: start: 20050922
  19. AVASTIN [Suspect]
     Active Substance: BEVACIZUMAB
     Route: 042
     Dates: start: 20050922
  20. KYTRIL [Concomitant]
     Active Substance: GRANISETRON HYDROCHLORIDE
     Route: 042
     Dates: start: 20050825
  21. DECADRON [Concomitant]
     Active Substance: DEXAMETHASONE
     Route: 042
     Dates: start: 20050825
  22. TAGAMET [Concomitant]
     Active Substance: CIMETIDINE
     Route: 042
     Dates: start: 20050825
  23. ATARAX [Concomitant]
     Active Substance: HYDROXYZINE\HYDROXYZINE HYDROCHLORIDE
  24. DECADRON [Concomitant]
     Active Substance: DEXAMETHASONE
     Route: 042
     Dates: start: 20050815
  25. TAGAMET [Concomitant]
     Active Substance: CIMETIDINE
     Route: 042
     Dates: start: 20050908
  26. AVASTIN [Suspect]
     Active Substance: BEVACIZUMAB
     Route: 042
     Dates: start: 20050815
  27. KYTRIL [Concomitant]
     Active Substance: GRANISETRON HYDROCHLORIDE
     Route: 042
     Dates: start: 20050922
  28. BENADRYL [Concomitant]
     Active Substance: DIPHENHYDRAMINE HYDROCHLORIDE
     Route: 042
     Dates: start: 20050908

REACTIONS (17)
  - Fatigue [Unknown]
  - Urticaria [Unknown]
  - Bone pain [Unknown]
  - Haemorrhoids [Unknown]
  - Off label use [Unknown]
  - Musculoskeletal pain [Unknown]
  - Death [Fatal]
  - Leukocytosis [Unknown]
  - Perirectal abscess [Unknown]
  - Vomiting [Unknown]
  - Upper respiratory tract infection [Unknown]
  - Burning sensation [Unknown]
  - Dyspnoea [Unknown]
  - Nausea [Unknown]
  - Pilonidal cyst [Unknown]
  - Diarrhoea [Unknown]
  - Rash macular [Unknown]
